FAERS Safety Report 12256998 (Version 1)
Quarter: 2016Q2

REPORT INFORMATION
  Report Type: Spontaneous
  Country: US (occurrence: US)
  Receive Date: 20160412
  Receipt Date: 20160412
  Transmission Date: 20160815
  Serious: Yes (Hospitalization, Other)
  Sender: FDA-Public Use
  Company Number: US-ASTELLAS-2016US011680

PATIENT
  Age: 89 Year
  Sex: Male

DRUGS (3)
  1. MYRBETRIQ [Suspect]
     Active Substance: MIRABEGRON
     Indication: PRODUCT USED FOR UNKNOWN INDICATION
     Route: 065
  2. MYRBETRIQ [Suspect]
     Active Substance: MIRABEGRON
     Dosage: 25 MG, 2 TABLETS DAILY (SOMETIMES)
     Route: 065
  3. MYRBETRIQ [Suspect]
     Active Substance: MIRABEGRON
     Route: 065

REACTIONS (9)
  - Atrial fibrillation [Unknown]
  - Systemic infection [Unknown]
  - Therapeutic response delayed [Unknown]
  - Urinary tract infection [Unknown]
  - Urinary tract disorder [Unknown]
  - Nocturia [Unknown]
  - Drug ineffective [Unknown]
  - Inappropriate schedule of drug administration [Unknown]
  - Pollakiuria [Unknown]

NARRATIVE: CASE EVENT DATE: 20160315
